FAERS Safety Report 16857612 (Version 1)
Quarter: 2020Q3

REPORT INFORMATION
  Report Type: Spontaneous
  Country: US (occurrence: US)
  Receive Date: 20190926
  Receipt Date: 20190926
  Transmission Date: 20201104
  Serious: Yes (Hospitalization, Other)
  Sender: FDA-Public Use
  Company Number: US-ASTRAZENECA-2019SF34543

PATIENT
  Age: 60 Year
  Sex: Female

DRUGS (6)
  1. CEDIRANIB. [Suspect]
     Active Substance: CEDIRANIB
     Route: 065
  2. IBUPROFEN. [Concomitant]
     Active Substance: IBUPROFEN
     Dosage: 600.0MG AS REQUIRED
  3. KEPPRA [Concomitant]
     Active Substance: LEVETIRACETAM
     Dates: start: 201903
  4. LYNPARZA [Suspect]
     Active Substance: OLAPARIB
     Indication: OVARIAN CANCER
     Route: 048
     Dates: start: 2017, end: 201903
  5. KEPPRA [Concomitant]
     Active Substance: LEVETIRACETAM
  6. TYLENOL [Concomitant]
     Active Substance: ACETAMINOPHEN

REACTIONS (24)
  - Cerebrovascular accident [Unknown]
  - Metastases to central nervous system [Unknown]
  - Lung disorder [Unknown]
  - Eating disorder [Unknown]
  - Oxygen consumption decreased [Unknown]
  - Brain oedema [Unknown]
  - Haemoglobin decreased [Unknown]
  - Alopecia [Unknown]
  - Dizziness [Unknown]
  - Seizure [Unknown]
  - Ovarian cancer metastatic [Unknown]
  - Central nervous system lesion [Unknown]
  - Hemiparesis [Unknown]
  - Diarrhoea [Unknown]
  - Carbohydrate antigen 125 increased [Unknown]
  - Hypertension [Unknown]
  - Hypotension [Unknown]
  - Gait disturbance [Unknown]
  - Cough [Unknown]
  - Headache [Unknown]
  - Deformity [Unknown]
  - Weight increased [Unknown]
  - Productive cough [Unknown]
  - Asthenia [Unknown]
